FAERS Safety Report 17762911 (Version 1)
Quarter: 2020Q2

REPORT INFORMATION
  Report Type: Spontaneous
  Country: US (occurrence: US)
  Receive Date: 20200508
  Receipt Date: 20200508
  Transmission Date: 20200714
  Serious: Yes (Hospitalization, Other)
  Sender: FDA-Public Use
  Company Number: US-TAKEDA-2020TUS021646

PATIENT
  Age: 23 Year
  Sex: Male
  Weight: 69.39 kg

DRUGS (1)
  1. ENTYVIO [Suspect]
     Active Substance: VEDOLIZUMAB
     Indication: CROHN^S DISEASE
     Dosage: UNK
     Route: 042
     Dates: start: 202002, end: 202005

REACTIONS (3)
  - Dyspnoea [Unknown]
  - Deep vein thrombosis [Unknown]
  - Throat tightness [Unknown]

NARRATIVE: CASE EVENT DATE: 202005
